FAERS Safety Report 9388936 (Version 2)
Quarter: 2013Q4

REPORT INFORMATION
  Report Type: Spontaneous
  Country: US (occurrence: US)
  Receive Date: 20130708
  Receipt Date: 20131226
  Transmission Date: 20140711
  Serious: Yes (Hospitalization)
  Sender: FDA-Public Use
  Company Number: US-B.I. PHARMACEUTICALS,INC./RIDGEFIELD-2013-BI-19373BP

PATIENT
  Age: 69 Year
  Sex: Male
  Weight: 81.65 kg

DRUGS (10)
  1. PRADAXA [Suspect]
     Dates: start: 20110119
  2. ATROVENT HFA INHALER [Concomitant]
     Dates: start: 200710
  3. CHLORTHALIDONE [Concomitant]
     Dates: start: 200711
  4. DOXAZOSIN MESYLATE [Concomitant]
     Dates: start: 200807
  5. FOSINOPRIL SODIUM [Concomitant]
     Dates: start: 200705
  6. FUROSEMIDE [Concomitant]
     Dates: start: 200511
  7. GLIMEPIRIDE [Concomitant]
     Dates: start: 200806, end: 201212
  8. METOPROLOL TARTRATE [Concomitant]
     Dates: start: 200604
  9. OMEPRAZOLE [Concomitant]
     Dates: start: 200804
  10. PLAVIX [Concomitant]
     Dates: start: 200704, end: 201207

REACTIONS (2)
  - Gastrointestinal haemorrhage [Unknown]
  - Anaemia [Unknown]
